FAERS Safety Report 17186328 (Version 8)
Quarter: 2020Q3

REPORT INFORMATION
  Report Type: Report from Study
  Country: CA (occurrence: CA)
  Receive Date: 20191220
  Receipt Date: 20200918
  Transmission Date: 20201102
  Serious: Yes (Death, Life-Threatening, Hospitalization, Disabling)
  Sender: FDA-Public Use
  Company Number: CA-EISAI MEDICAL RESEARCH-EC-2019-067452

PATIENT
  Age: 81 Year
  Sex: Female
  Weight: 42.8 kg

DRUGS (11)
  1. LASIX [Concomitant]
     Active Substance: FUROSEMIDE
     Dates: start: 201901, end: 202001
  2. LENVATINIB [Suspect]
     Active Substance: LENVATINIB
     Indication: ENDOMETRIAL CANCER
     Route: 048
     Dates: start: 20191211, end: 20191212
  3. SPIRONOLACTONE. [Concomitant]
     Active Substance: SPIRONOLACTONE
     Dates: start: 20191206, end: 201912
  4. BISOPROLOL [Concomitant]
     Active Substance: BISOPROLOL
     Dates: start: 200401, end: 20200128
  5. SENOKOT [Concomitant]
     Active Substance: SENNOSIDES
     Dates: start: 201801, end: 20200128
  6. CHOLECALCIFEROL [Concomitant]
     Active Substance: CHOLECALCIFEROL
     Dates: start: 200401
  7. CRESTOR [Concomitant]
     Active Substance: ROSUVASTATIN CALCIUM
     Dates: start: 199401, end: 20191216
  8. OMEGA?3 ACIDS [Concomitant]
     Active Substance: OMEGA-3 FATTY ACIDS
     Dates: start: 200401, end: 20200128
  9. UBIDECARENONE [Concomitant]
     Active Substance: UBIDECARENONE
     Dates: start: 200401, end: 20200128
  10. VITAMINS (UNSPECIFIED) [Concomitant]
     Active Substance: VITAMINS
     Dates: start: 200401, end: 20200128
  11. PEMBROLIZUMAB. [Suspect]
     Active Substance: PEMBROLIZUMAB
     Indication: ENDOMETRIAL CANCER
     Route: 041
     Dates: start: 20191211, end: 20191211

REACTIONS (1)
  - Cerebrovascular accident [Fatal]

NARRATIVE: CASE EVENT DATE: 20191213
